FAERS Safety Report 5657325-1 (Version None)
Quarter: 2008Q1

REPORT INFORMATION
  Report Type: 
  Country: None (occurrence: None)
  Receive Date: 20080310
  Receipt Date: 20080227
  Transmission Date: 20080703
  Serious: Yes (Other)
  Sender: FDA-Public Use
  Company Number: PHHO2005EC05499

PATIENT
  Age: 50 Year
  Sex: Female

DRUGS (4)
  1. GLEEVEC [Suspect]
     Indication: CHRONIC MYELOID LEUKAEMIA
     Dosage: 400 MG, QD
     Route: 048
     Dates: start: 20050114, end: 20050329
  2. GLEEVEC [Suspect]
     Dosage: 300 MG, QD
     Route: 048
     Dates: end: 20050412
  3. GLEEVEC [Suspect]
     Dosage: 300 MG, QD
     Route: 048
     Dates: start: 20050525, end: 20080224
  4. BUSULPHAN [Suspect]

REACTIONS (18)
  - DIZZINESS [None]
  - ECCHYMOSIS [None]
  - EPISTAXIS [None]
  - EYELID OEDEMA [None]
  - FATIGUE [None]
  - HAEMATOCRIT DECREASED [None]
  - HAEMOGLOBIN DECREASED [None]
  - LEUKOPENIA [None]
  - LYMPHOCYTE COUNT INCREASED [None]
  - MALAISE [None]
  - MOUTH ULCERATION [None]
  - MUCOSAL DISCOLOURATION [None]
  - NAUSEA [None]
  - PALLOR [None]
  - PETECHIAE [None]
  - PHOTOPHOBIA [None]
  - PRURITUS GENERALISED [None]
  - THROMBOCYTOPENIA [None]
